FAERS Safety Report 4984464-0 (Version None)
Quarter: 2006Q2

REPORT INFORMATION
  Report Type: 
  Country: None (occurrence: None)
  Receive Date: 20060427
  Receipt Date: 20060413
  Transmission Date: 20061013
  Serious: Yes (Hospitalization)
  Sender: FDA-Public Use
  Company Number: GB-GLAXOSMITHKLINE-B0420499A

PATIENT
  Age: 91 Year
  Sex: Male

DRUGS (11)
  1. FUROSEMIDE [Suspect]
     Indication: POLYURIA
     Dosage: 80MG PER DAY
     Route: 048
     Dates: end: 20060405
  2. SPIRONOLACTONE [Suspect]
     Indication: POLYURIA
     Dosage: 25MG PER DAY
     Route: 048
     Dates: end: 20060405
  3. DIGOXIN [Suspect]
     Indication: ATRIAL FIBRILLATION
     Dosage: 125MCG PER DAY
     Route: 048
     Dates: start: 20051201, end: 20060405
  4. AMIODARONE [Suspect]
     Indication: ATRIAL FIBRILLATION
     Dosage: 200MG PER DAY
     Route: 048
     Dates: start: 20051201, end: 20060405
  5. ARCOXIA [Suspect]
     Indication: ARTHRITIS
     Dosage: 80MG PER DAY
     Route: 048
     Dates: start: 20060201, end: 20060405
  6. COVERSYL [Suspect]
     Dosage: 4MG PER DAY
     Route: 048
     Dates: end: 20060405
  7. CEPHALEXIN [Concomitant]
     Indication: PROPHYLAXIS
     Dosage: 250MG PER DAY
     Route: 048
  8. BISOPROLOL [Concomitant]
     Indication: HYPERTENSION
     Dosage: 10MG PER DAY
     Route: 048
  9. SALBUTAMOL [Concomitant]
     Indication: OBSTRUCTIVE AIRWAYS DISORDER
     Dosage: 2PUFF AS REQUIRED
     Route: 055
  10. ATROVENT [Concomitant]
     Indication: OBSTRUCTIVE AIRWAYS DISORDER
     Dosage: 2PUFF TWICE PER DAY
     Route: 055
  11. FLIXOTIDE [Concomitant]
     Indication: OBSTRUCTIVE AIRWAYS DISORDER
     Dosage: 1PUFF TWICE PER DAY
     Route: 055

REACTIONS (4)
  - CARDIOACTIVE DRUG LEVEL INCREASED [None]
  - LIVER FUNCTION TEST ABNORMAL [None]
  - RENAL FAILURE [None]
  - RENAL FAILURE ACUTE [None]
